FAERS Safety Report 8706999 (Version 2)
Quarter: 2013Q4

REPORT INFORMATION
  Report Type: Spontaneous
  Country: US (occurrence: US)
  Receive Date: 20120803
  Receipt Date: 20131105
  Transmission Date: 20140711
  Serious: Yes (Disabling)
  Sender: FDA-Public Use
  Company Number: US-MERCK-1207USA011239

PATIENT
  Sex: Female

DRUGS (2)
  1. ZOCOR [Suspect]
     Dosage: 20 MG, QD
     Route: 048
  2. ZOCOR [Suspect]
     Dosage: 10 MG, QD
     Route: 048

REACTIONS (4)
  - Dysstasia [Unknown]
  - Ligament rupture [Unknown]
  - Asthenia [Unknown]
  - Muscular weakness [Unknown]
